FAERS Safety Report 5146915-0 (Version None)
Quarter: 2006Q4

REPORT INFORMATION
  Report Type: 
  Country: None (occurrence: None)
  Receive Date: 20061108
  Receipt Date: 20061108
  Transmission Date: 20070319
  Serious: Yes (Hospitalization)
  Sender: FDA-Public Use
  Company Number: None

PATIENT
  Sex: Male
  Weight: 123 kg

DRUGS (7)
  1. FLUDARABINE [Suspect]
     Indication: LEUKAEMIA
     Dosage: 72MG  DAILY   IV
     Route: 042
     Dates: start: 20060824, end: 20060828
  2. MELPHLAN [Suspect]
     Dosage: 336 MG  TIMES ONE  IV
     Route: 042
     Dates: start: 20060829, end: 20060829
  3. CAMPAHT [Concomitant]
  4. PREDNISONE TAB [Concomitant]
  5. PREVACID [Concomitant]
  6. VALTREX [Concomitant]
  7. DIFLUCAN [Concomitant]

REACTIONS (8)
  - BACTERIAL INFECTION [None]
  - BLOOD CULTURE POSITIVE [None]
  - DEEP VEIN THROMBOSIS [None]
  - DIZZINESS [None]
  - HYPOXIA [None]
  - PULMONARY EMBOLISM [None]
  - SYNCOPE [None]
  - UNRESPONSIVE TO STIMULI [None]
